FAERS Safety Report 17362005 (Version 1)
Quarter: 2020Q1

REPORT INFORMATION
  Report Type: Spontaneous
  Country: BE (occurrence: BE)
  Receive Date: 20200203
  Receipt Date: 20200203
  Transmission Date: 20200409
  Serious: Yes (Other)
  Sender: FDA-Public Use
  Company Number: BE-BAYER-2020-015280

PATIENT
  Sex: Female

DRUGS (2)
  1. ENTEROL [FURAZOLIDONE] [Concomitant]
     Active Substance: FURAZOLIDONE
     Dosage: UNK
  2. CIPROFLOXACIN BETAIN [Suspect]
     Active Substance: CIPROFLOXACIN
     Dosage: UNK
     Route: 048

REACTIONS (2)
  - Tongue oedema [Recovered/Resolved]
  - Tongue discolouration [Recovered/Resolved]
